FAERS Safety Report 5065204-6 (Version None)
Quarter: 2006Q3

REPORT INFORMATION
  Report Type: 
  Country: None (occurrence: None)
  Receive Date: 20060703
  Receipt Date: 20060314
  Transmission Date: 20061208
  Serious: Yes (Life-Threatening, Other)
  Sender: FDA-Public Use
  Company Number: 2006-0009323

PATIENT
  Age: 34 Year
  Sex: Female
  Weight: 141.9759 kg

DRUGS (17)
  1. VIREAD [Suspect]
     Indication: HIV INFECTION
     Dosage: 300 MG, 1 IN 1 D, ORAL
     Route: 048
     Dates: start: 20020315, end: 20060106
  2. COMBIVIR [Concomitant]
  3. KALETRA [Concomitant]
  4. CELEBREX [Concomitant]
  5. LOTENSIN [Concomitant]
  6. AMBIEN [Concomitant]
  7. BENADRYL [Concomitant]
  8. CALCIUM (CALCIUM-SANDOZ [Concomitant]
  9. CLARITIN [Concomitant]
  10. KLONOPIN [Concomitant]
  11. ULTRASE (PANCRELIPASE) [Concomitant]
  12. PRILOSEC [Concomitant]
  13. PREMARIN [Concomitant]
  14. LOTRIMIN [Concomitant]
  15. LOMOTIL [Concomitant]
  16. HYDROCORTISONE(HYDROCORTISONE /00028601/) [Concomitant]
  17. FIBERCON (POLYCARBOPHIL CALCIUM) [Concomitant]

REACTIONS (1)
  - RENAL FAILURE ACUTE [None]
